FAERS Safety Report 16049224 (Version 1)
Quarter: 2019Q1

REPORT INFORMATION
  Report Type: Spontaneous
  Country: DE (occurrence: DE)
  Receive Date: 20190307
  Receipt Date: 20190307
  Transmission Date: 20190418
  Serious: Yes (Other)
  Sender: FDA-Public Use
  Company Number: DE-BAYER-2019-043809

PATIENT
  Sex: Female

DRUGS (1)
  1. STIVARGA [Suspect]
     Active Substance: REGORAFENIB
     Indication: HEPATOCELLULAR CARCINOMA
     Dosage: 160 MG, QD
     Dates: start: 201611, end: 201801

REACTIONS (5)
  - Cardiac ventricular disorder [None]
  - Mediastinal mass [None]
  - Blood pressure increased [None]
  - Palpitations [None]
  - Hepatocellular carcinoma [None]

NARRATIVE: CASE EVENT DATE: 201801
